FAERS Safety Report 8304590-8 (Version None)
Quarter: 2012Q2

REPORT INFORMATION
  Report Type: 
  Country: None (occurrence: None)
  Receive Date: 20120423
  Receipt Date: 20120417
  Transmission Date: 20120825
  Serious: Yes (Hospitalization, Other)
  Sender: FDA-Public Use
  Company Number: US-AMGEN-USASP2012005092

PATIENT
  Age: 68 Year
  Sex: Female

DRUGS (19)
  1. REGLAN [Concomitant]
     Dosage: UNK
  2. BENADRYL [Concomitant]
     Dosage: UNK
  3. PLAVIX [Concomitant]
     Dosage: UNK
  4. AMITRIPTYLENE [Concomitant]
     Dosage: UNK
  5. KLONOPIN [Concomitant]
     Dosage: UNK
  6. CRESTOR [Concomitant]
     Dosage: UNK
  7. LEVOXYL [Concomitant]
     Dosage: UNK
  8. LANTUS [Concomitant]
     Dosage: UNK
  9. COMPAZINE [Concomitant]
     Dosage: UNK
  10. KEPPRA [Concomitant]
     Indication: CONVULSION
     Dosage: 500 MG, QD
  11. DILANTIN [Concomitant]
     Indication: CONVULSION
     Dosage: 100 MG, BID
  12. LISINOPRIL [Concomitant]
     Dosage: UNK
  13. SENSIPAR [Suspect]
     Indication: HYPERPARATHYROIDISM SECONDARY
     Dosage: 30 MG, QD
     Dates: start: 20110125, end: 20120207
  14. METOPROLOL TARTRATE [Concomitant]
     Dosage: UNK
  15. PHOSLO [Concomitant]
     Dosage: UNK
  16. LEXAPRO [Concomitant]
     Dosage: UNK
  17. KEPPRA [Concomitant]
     Dosage: 250 MG, QD
  18. VICODIN [Concomitant]
     Dosage: UNK
  19. ATIVAN [Concomitant]
     Dosage: UNK

REACTIONS (6)
  - DRUG LEVEL BELOW THERAPEUTIC [None]
  - BLOOD PRESSURE DECREASED [None]
  - CONVULSION [None]
  - DECREASED APPETITE [None]
  - DRUG INTERACTION [None]
  - WEIGHT DECREASED [None]
